FAERS Safety Report 8671684 (Version 5)
Quarter: 2013Q1

REPORT INFORMATION
  Report Type: Spontaneous
  Country: US (occurrence: US)
  Receive Date: 20120718
  Receipt Date: 20130329
  Transmission Date: 20140127
  Serious: Yes (Hospitalization, Disabling, Other)
  Sender: FDA-Public Use
  Company Number: US-009507513-1207USA003752

PATIENT
  Sex: Male
  Weight: 87.75 kg

DRUGS (5)
  1. FOSAMAX [Suspect]
     Indication: OSTEOPENIA
     Dosage: 70 MG, QW
     Route: 048
     Dates: start: 200202, end: 20080205
  2. FOSAMAX [Suspect]
     Indication: OSTEOPOROSIS
  3. CENTRUM (MINERALS (UNSPECIFIED) (+) VITAMINS (UNSPECIFIED)) [Concomitant]
     Dosage: UNK
     Route: 048
  4. CORTICOSTEROIDS (UNSPECIFIED) [Concomitant]
     Dosage: UNK
     Dates: start: 1990, end: 2005
  5. CALTRATE WITH VITAMIN D [Concomitant]
     Indication: OSTEOPOROSIS
     Dosage: 2 DF, QD

REACTIONS (44)
  - Femur fracture [Recovered/Resolved]
  - Cardiac disorder [Not Recovered/Not Resolved]
  - Intervertebral disc degeneration [Not Recovered/Not Resolved]
  - Fall [Unknown]
  - Transurethral prostatectomy [Unknown]
  - Hypoacusis [Unknown]
  - Cerebrovascular accident [Unknown]
  - Blindness unilateral [Unknown]
  - Open reduction of fracture [Unknown]
  - Pancreatitis [Unknown]
  - Rotator cuff repair [Unknown]
  - Bladder neck operation [Unknown]
  - Gallbladder operation [Unknown]
  - Adverse drug reaction [Unknown]
  - Irritable bowel syndrome [Unknown]
  - Device failure [Unknown]
  - Low turnover osteopathy [Unknown]
  - Erectile dysfunction [Unknown]
  - Adverse drug reaction [Unknown]
  - Urinary tract infection [Unknown]
  - Depression [Unknown]
  - Benign prostatic hyperplasia [Unknown]
  - Osteoarthritis [Unknown]
  - Fatigue [Unknown]
  - Tinnitus [Unknown]
  - Lumbar radiculopathy [Unknown]
  - Chest pain [Unknown]
  - Colitis [Unknown]
  - Sexual dysfunction [Unknown]
  - Arteriosclerosis coronary artery [Unknown]
  - Catheterisation cardiac [Unknown]
  - Bundle branch block left [Unknown]
  - Coronary artery disease [Unknown]
  - Transient ischaemic attack [Unknown]
  - Gallbladder disorder [Unknown]
  - Rotator cuff syndrome [Unknown]
  - Hypertension [Unknown]
  - Cataract [Unknown]
  - Bursitis [Unknown]
  - Musculoskeletal pain [Unknown]
  - Dyspepsia [Unknown]
  - Drug ineffective [Unknown]
  - Gastrooesophageal reflux disease [Unknown]
  - Headache [Unknown]
